FAERS Safety Report 4368885-5 (Version None)
Quarter: 2004Q2

REPORT INFORMATION
  Report Type: 
  Country: None (occurrence: None)
  Receive Date: 20040525
  Receipt Date: 20040518
  Transmission Date: 20050107
  Serious: Yes (Hospitalization)
  Sender: FDA-Public Use
  Company Number: US-SHR-04-024815

PATIENT
  Age: 46 Year
  Sex: Male
  Weight: 74.8 kg

DRUGS (3)
  1. BETASERON [Suspect]
     Indication: PROGRESSIVE MULTIPLE SCLEROSIS
     Dosage: 8 MIU, EVERY 2D, SUBCUTANEOUS
     Route: 058
     Dates: start: 20031201
  2. LACTULOSE [Concomitant]
  3. PAXIL [Concomitant]

REACTIONS (8)
  - DEHYDRATION [None]
  - FACIAL PALSY [None]
  - FOAMING AT MOUTH [None]
  - KIDNEY INFECTION [None]
  - MOOD SWINGS [None]
  - PNEUMONIA [None]
  - TREMOR [None]
  - UROSEPSIS [None]
